FAERS Safety Report 8937013 (Version 3)
Quarter: 2013Q1

REPORT INFORMATION
  Report Type: Spontaneous
  Country: DE (occurrence: DE)
  Receive Date: 20121130
  Receipt Date: 20130201
  Transmission Date: 20140127
  Serious: Yes (Life-Threatening, Disabling, Other)
  Sender: FDA-Public Use
  Company Number: DE-ROCHE-1162427

PATIENT
  Age: 55 Year
  Sex: Male
  Weight: 73 kg

DRUGS (8)
  1. XOLAIR [Suspect]
     Indication: ASTHMA
     Route: 065
     Dates: start: 201107, end: 201209
  2. SALMETEROL XINAFOATE [Concomitant]
     Dosage: 50/500 UG
     Route: 065
  3. PAROXETINE [Concomitant]
  4. GINKOBIL [Concomitant]
  5. RANITIDINE HYDROCHLORIDE [Concomitant]
  6. ERGOTAMINE [Concomitant]
  7. VIANI [Concomitant]
  8. SPIRIVA [Concomitant]
     Dosage: 18 UG
     Route: 065

REACTIONS (4)
  - Cerebrovascular accident [Not Recovered/Not Resolved]
  - Retinal artery occlusion [Not Recovered/Not Resolved]
  - Eosinophilic pneumonia [Recovered/Resolved]
  - Extrasystoles [Unknown]
